FAERS Safety Report 8510862-4 (Version None)
Quarter: 2012Q3

REPORT INFORMATION
  Report Type: 
  Country: None (occurrence: None)
  Receive Date: 20120703
  Receipt Date: 20120618
  Transmission Date: 20120928
  Serious: Yes (Death, Life-Threatening)
  Sender: FDA-Public Use
  Company Number: LTI2012A00143

PATIENT
  Age: 51 Year
  Sex: Male

DRUGS (13)
  1. LASIX [Suspect]
     Indication: PRODUCT USED FOR UNKNOWN INDICATION
     Dosage: INTRAVENOUS
     Route: 042
     Dates: start: 20120501, end: 20120509
  2. ROCEPHIN [Suspect]
     Indication: STAPHYLOCOCCAL INFECTION
     Dosage: 1 GM (1 GM, 1 IN 1 D), INTRAVENOUS
     Route: 042
     Dates: start: 20120503, end: 20120510
  3. VITAMINE B6 (PYRIDOXINE HYDROCHLORIDE) [Concomitant]
  4. ALBUMIN (HUMAN) [Suspect]
     Indication: PRODUCT USED FOR UNKNOWN INDICATION
     Dosage: INTRAVENOUS
     Route: 042
     Dates: start: 20120501, end: 20120509
  5. CIPROFLOXACIN [Suspect]
     Indication: STAPHYLOCOCCAL INFECTION
     Dosage: 1 DF (1 DF, 1 IN 1 D), INTRAVENOUS
     Route: 042
     Dates: start: 20120425, end: 20120427
  6. NEFOPAM (NEFOPAM) [Concomitant]
  7. GENTAMICIN [Suspect]
     Indication: STAPHYLOCOCCAL INFECTION
     Dosage: (1 IN 1 D) INTRAVENOUS
     Route: 042
     Dates: start: 20120425, end: 20120425
  8. LANSOPRAZOLE [Suspect]
     Indication: PRODUCT USED FOR UNKNOWN INDICATION
     Dosage: 30 MG (30 MG, 1 IN 1 D) ORAL
     Route: 048
     Dates: start: 20120501, end: 20120510
  9. VITAMINE B1 (THIAMINE HYDROCHLORIDE) [Concomitant]
  10. ORBENIN CAP [Suspect]
     Indication: STAPHYLOCOCCAL INFECTION
     Dosage: 250 MG/2.5ML (1 DF, 1 IIN 4 D) INTRAVENOUS
     Route: 042
     Dates: start: 20120425, end: 20120510
  11. NOREPINEPHRINE BITARTRATE [Suspect]
     Indication: HYPOTENSION
     Dosage: 21.6 MG (0.9 MG, 1 IN 1 HR), INTRAVENOUS
     Route: 042
     Dates: start: 20120430
  12. ESOMEPRAZOLE MAGNESIUM [Concomitant]
  13. POTASSIUM CHLORIDE [Concomitant]

REACTIONS (15)
  - CONDITION AGGRAVATED [None]
  - LUNG INFECTION [None]
  - HYPERBILIRUBINAEMIA [None]
  - ASCITES [None]
  - ENCEPHALOPATHY [None]
  - ARTHRITIS INFECTIVE [None]
  - INFECTIOUS PERITONITIS [None]
  - MULTI-ORGAN FAILURE [None]
  - RENAL FAILURE [None]
  - ENTEROCOCCAL SEPSIS [None]
  - PLEURAL INFECTION [None]
  - THROMBOCYTOPENIA [None]
  - LEUKOPENIA [None]
  - OEDEMA [None]
  - APLASTIC ANAEMIA [None]
